FAERS Safety Report 4357083-7 (Version None)
Quarter: 2004Q2

REPORT INFORMATION
  Report Type: 
  Country: None (occurrence: None)
  Receive Date: 20040507
  Receipt Date: 20040426
  Transmission Date: 20050107
  Serious: Yes (Life-Threatening, Hospitalization)
  Sender: FDA-Public Use
  Company Number: GB-JNJFOC-20040405530

PATIENT
  Age: 60 Year
  Sex: Female

DRUGS (5)
  1. REMICADE [Suspect]
     Indication: RHEUMATOID ARTHRITIS
     Dosage: 300 MG, INTRAVENOUS
     Route: 042
     Dates: start: 20020904, end: 20030401
  2. METHOTREXATE [Concomitant]
  3. PREDNISOLONE [Concomitant]
  4. ALENDRONATE (ALENDRONATE SODIUM) [Concomitant]
  5. FOLIC ACID [Concomitant]

REACTIONS (1)
  - AORTIC VALVE REPLACEMENT [None]
